FAERS Safety Report 17255337 (Version 1)
Quarter: 2020Q1

REPORT INFORMATION
  Report Type: Report from Study
  Country: FR (occurrence: FR)
  Receive Date: 20200110
  Receipt Date: 20200110
  Transmission Date: 20200409
  Serious: Yes (Death)
  Sender: FDA-Public Use
  Company Number: FR-ROCHE-2518929

PATIENT

DRUGS (4)
  1. CYCLOPHOSPHAMIDE. [Suspect]
     Active Substance: CYCLOPHOSPHAMIDE
     Indication: EVANS SYNDROME
     Route: 065
  2. AZATHIOPRINE. [Suspect]
     Active Substance: AZATHIOPRINE
     Indication: EVANS SYNDROME
     Route: 065
  3. MYCOPHENOLATE MOFETIL. [Suspect]
     Active Substance: MYCOPHENOLATE MOFETIL
     Indication: EVANS SYNDROME
     Route: 065
  4. CYCLOSPORINE. [Suspect]
     Active Substance: CYCLOSPORINE
     Indication: EVANS SYNDROME
     Route: 065

REACTIONS (12)
  - Uterine cancer [Fatal]
  - Pancreatic carcinoma [Fatal]
  - Staphylococcal infection [Fatal]
  - Bacterial infection [Fatal]
  - Pneumonia aspiration [Fatal]
  - Septic shock [Fatal]
  - Pseudomonas infection [Fatal]
  - Myocardial infarction [Fatal]
  - Cerebrovascular accident [Fatal]
  - B-cell lymphoma [Fatal]
  - Oesophageal carcinoma [Fatal]
  - Myelodysplastic syndrome [Fatal]
